FAERS Safety Report 9620298 (Version 2)
Quarter: 2013Q4

REPORT INFORMATION
  Report Type: Spontaneous
  Country: US (occurrence: US)
  Receive Date: 20131014
  Receipt Date: 20131014
  Transmission Date: 20140711
  Serious: No
  Sender: FDA-Public Use
  Company Number: US-ALLERGAN-1301425US

PATIENT
  Sex: Female
  Weight: 120 kg

DRUGS (2)
  1. ALPHAGAN P [Suspect]
     Indication: GLAUCOMA
     Dosage: 1 GTT, BID
     Dates: start: 20121212, end: 20130112
  2. LATANOPROST [Concomitant]
     Indication: GLAUCOMA
     Dosage: UNK
     Dates: start: 2011

REACTIONS (5)
  - Ocular discomfort [Unknown]
  - Scleral hyperaemia [Unknown]
  - Eye pruritus [Unknown]
  - Eye irritation [Unknown]
  - Ocular hyperaemia [Unknown]
